FAERS Safety Report 23491816 (Version 1)
Quarter: 2024Q1

REPORT INFORMATION
  Report Type: Spontaneous
  Country: NL (occurrence: NL)
  Receive Date: 20240207
  Receipt Date: 20240207
  Transmission Date: 20240410
  Serious: Yes (Hospitalization, Other)
  Sender: FDA-Public Use
  Company Number: NL-009507513-2402NLD000157

PATIENT
  Age: 12 Year
  Sex: Female

DRUGS (2)
  1. PEMBROLIZUMAB [Suspect]
     Active Substance: PEMBROLIZUMAB
     Indication: Metastatic renal cell carcinoma
     Dosage: UNK
  2. AXITINIB [Suspect]
     Active Substance: AXITINIB
     Indication: Metastatic renal cell carcinoma
     Dosage: UNK

REACTIONS (7)
  - Febrile neutropenia [Unknown]
  - Tubulointerstitial nephritis [Unknown]
  - Hypothyroidism [Unknown]
  - Dermatosis [Unknown]
  - Hypertension [Unknown]
  - Alopecia [Unknown]
  - Product administered to patient of inappropriate age [Unknown]
